FAERS Safety Report 16082139 (Version 1)
Quarter: 2019Q1

REPORT INFORMATION
  Report Type: Spontaneous
  Country: CA (occurrence: CA)
  Receive Date: 20190317
  Receipt Date: 20190317
  Transmission Date: 20190418
  Serious: Yes (Other)
  Sender: FDA-Public Use
  Company Number: CA-SAMSUNG BIOEPIS-SB-2019-06059

PATIENT
  Age: 67 Year
  Sex: Male

DRUGS (1)
  1. INFLIXIMAB [Suspect]
     Active Substance: INFLIXIMAB
     Indication: CROHN^S DISEASE
     Route: 042

REACTIONS (12)
  - Abdominal distension [Recovering/Resolving]
  - Condition aggravated [Recovering/Resolving]
  - Loss of personal independence in daily activities [Recovering/Resolving]
  - Blood pressure fluctuation [Recovering/Resolving]
  - Inguinal hernia [Recovering/Resolving]
  - Intestinal obstruction [Recovering/Resolving]
  - Infusion site extravasation [Recovering/Resolving]
  - Drug effect incomplete [Recovering/Resolving]
  - Fistula [Recovering/Resolving]
  - Incorrect product administration duration [Recovering/Resolving]
  - Off label use [Recovering/Resolving]
  - Constipation [Recovering/Resolving]
